FAERS Safety Report 25860339 (Version 1)
Quarter: 2025Q3

REPORT INFORMATION
  Report Type: Spontaneous
  Country: EU (occurrence: EU)
  Receive Date: 20250929
  Receipt Date: 20250929
  Transmission Date: 20251020
  Serious: Yes (Hospitalization)
  Sender: MYLAN
  Company Number: None

PATIENT
  Age: 26 Year
  Sex: Female
  Weight: 59.5 kg

DRUGS (4)
  1. ACETAMINOPHEN [Suspect]
     Active Substance: ACETAMINOPHEN
     Indication: Product used for unknown indication
     Dates: start: 20250812, end: 20250812
  2. KETOPROFEN [Suspect]
     Active Substance: KETOPROFEN
     Indication: Product used for unknown indication
     Dates: start: 20250812, end: 20250812
  3. NEFOPAM [Suspect]
     Active Substance: NEFOPAM
     Indication: Product used for unknown indication
     Dates: start: 20250812, end: 20250812
  4. GABAPENTIN [Concomitant]
     Active Substance: GABAPENTIN
     Indication: Poisoning deliberate
     Dates: start: 20250812, end: 20250812

REACTIONS (2)
  - Hepatitis fulminant [Recovering/Resolving]
  - Poisoning deliberate [Recovered/Resolved]

NARRATIVE: CASE EVENT DATE: 20250812
